FAERS Safety Report 9201303 (Version 2)
Quarter: 2013Q2

REPORT INFORMATION
  Report Type: Spontaneous
  Country: FR (occurrence: FR)
  Receive Date: 20130401
  Receipt Date: 20130408
  Transmission Date: 20140414
  Serious: Yes (Hospitalization)
  Sender: FDA-Public Use
  Company Number: FR-SANOFI-AVENTIS-2013SA031680

PATIENT
  Age: 32 Year
  Sex: Female
  Weight: 63 kg

DRUGS (2)
  1. DOCETAXEL [Suspect]
     Indication: PRODUCT USED FOR UNKNOWN INDICATION
     Route: 065
     Dates: start: 20130109, end: 20130220
  2. TRASTUZUMAB [Suspect]
     Indication: HER-2 POSITIVE BREAST CANCER
     Route: 058
     Dates: start: 20130109

REACTIONS (4)
  - Asthenia [Recovered/Resolved]
  - Tachycardia [Unknown]
  - Palpitations [Unknown]
  - Anxiety [Unknown]
